FAERS Safety Report 10174985 (Version 8)
Quarter: 2014Q4

REPORT INFORMATION
  Report Type: Report from Study
  Country: US (occurrence: US)
  Receive Date: 20140515
  Receipt Date: 20141112
  Transmission Date: 20150528
  Serious: Yes (Hospitalization, Disabling)
  Sender: FDA-Public Use
  Company Number: US-ACTELION-A-NJ2013-90213

PATIENT
  Age: 54 Year
  Sex: Female

DRUGS (5)
  1. TRACLEER [Suspect]
     Active Substance: BOSENTAN\BOSENTAN MONOHYDRATE
     Indication: PULMONARY ARTERIAL HYPERTENSION
     Dosage: 125 MG, BID
     Route: 048
  2. VELETRI [Suspect]
     Active Substance: EPOPROSTENOL
     Dosage: 83 NG/KG, PER MIN
     Route: 042
     Dates: start: 20101214
  3. SILDENAFIL. [Concomitant]
     Active Substance: SILDENAFIL
     Indication: PULMONARY ARTERIAL HYPERTENSION
     Dosage: 80 MG, TID
  4. COUMADIN [Concomitant]
     Active Substance: WARFARIN SODIUM
  5. VELETRI [Suspect]
     Active Substance: EPOPROSTENOL
     Indication: PULMONARY ARTERIAL HYPERTENSION
     Dosage: 79 NG/KG, PER MIN
     Route: 042
     Dates: start: 20101214

REACTIONS (16)
  - Right ventricular failure [Unknown]
  - Oedema [Unknown]
  - Fatigue [Not Recovered/Not Resolved]
  - Condition aggravated [Unknown]
  - Condition aggravated [Not Recovered/Not Resolved]
  - Weight increased [Recovered/Resolved]
  - Fluid retention [Recovering/Resolving]
  - Acute kidney injury [Unknown]
  - Ascites [Recovered/Resolved]
  - Dyspnoea [Unknown]
  - Pulmonary arterial hypertension [Recovering/Resolving]
  - Cardiac output decreased [Not Recovered/Not Resolved]
  - Fluid retention [Unknown]
  - Malaise [Unknown]
  - Diarrhoea [Recovered/Resolved]
  - Syncope [Unknown]

NARRATIVE: CASE EVENT DATE: 20131016
